FAERS Safety Report 4342532-0 (Version None)
Quarter: 2004Q2

REPORT INFORMATION
  Report Type: 
  Country: None (occurrence: None)
  Receive Date: 20040420
  Receipt Date: 20040415
  Transmission Date: 20050107
  Serious: Yes (Life-Threatening, Hospitalization, Disabling)
  Sender: FDA-Public Use
  Company Number: 7820

PATIENT
  Age: 67 Year
  Sex: Male

DRUGS (3)
  1. AMIODARONE HCL [Suspect]
     Indication: ATRIAL FIBRILLATION
     Dosage: 200 MG PO
     Route: 048
     Dates: start: 20020823, end: 20030707
  2. WARFARIN SODIUM [Concomitant]
  3. BISOPROLOL [Concomitant]

REACTIONS (1)
  - HYPERTHYROIDISM [None]
